FAERS Safety Report 11231287 (Version 1)
Quarter: 2015Q3

REPORT INFORMATION
  Report Type: Report from Study
  Country: GB (occurrence: GB)
  Receive Date: 20150701
  Receipt Date: 20150701
  Transmission Date: 20151125
  Serious: Yes (Hospitalization, Other)
  Sender: FDA-Public Use
  Company Number: GB-ABBVIE-15K-167-1415179-00

PATIENT
  Sex: Female
  Weight: 58.7 kg

DRUGS (2)
  1. HUMIRA [Suspect]
     Active Substance: ADALIMUMAB
     Route: 058
     Dates: start: 20150225
  2. HUMIRA [Suspect]
     Active Substance: ADALIMUMAB
     Indication: PSORIASIS
     Route: 058
     Dates: start: 20130926, end: 20150202

REACTIONS (4)
  - Tendon disorder [Unknown]
  - Joint hyperextension [Unknown]
  - Post procedural infection [Unknown]
  - Acquired claw toe [Unknown]

NARRATIVE: CASE EVENT DATE: 2015
